FAERS Safety Report 12319020 (Version 2)
Quarter: 2016Q2

REPORT INFORMATION
  Report Type: Spontaneous
  Country: US (occurrence: US)
  Receive Date: 20160429
  Receipt Date: 20160511
  Transmission Date: 20160815
  Serious: No
  Sender: FDA-Public Use
  Company Number: US-009507513-1604USA003719

PATIENT
  Sex: Female

DRUGS (1)
  1. NEXPLANON [Suspect]
     Active Substance: ETONOGESTREL
     Indication: CONTRACEPTION
     Dosage: 68 MG, ONE ROD PER 3 YEAR
     Route: 059
     Dates: start: 201408, end: 20160405

REACTIONS (5)
  - Device kink [Recovered/Resolved]
  - Device expulsion [Recovered/Resolved]
  - Implant site irritation [Unknown]
  - Device breakage [Recovered/Resolved]
  - Implant site erosion [Unknown]
